FAERS Safety Report 22180772 (Version 2)
Quarter: 2023Q4

REPORT INFORMATION
  Report Type: Report from Study
  Country: NO (occurrence: NO)
  Receive Date: 20230406
  Receipt Date: 20231123
  Transmission Date: 20240110
  Serious: Yes (Other)
  Sender: FDA-Public Use
  Company Number: NO-GLAXOSMITHKLINE-NO2023GSK049886

PATIENT

DRUGS (4)
  1. BELANTAMAB MAFODOTIN [Suspect]
     Active Substance: BELANTAMAB MAFODOTIN
     Indication: Plasma cell myeloma
     Dosage: 199.75 MG, Q4W
     Route: 042
     Dates: start: 20230119
  2. FIXOPOST [Concomitant]
     Indication: Glaucoma
     Dosage: 5 MG
     Route: 031
  3. LIVOSTIN [Concomitant]
     Active Substance: LEVOCABASTINE HYDROCHLORIDE
     Indication: Prophylaxis
     Dosage: UNK
     Dates: start: 20230115
  4. OCTAGAM IMMUNE GLOBULIN (HUMAN) [Concomitant]
     Active Substance: HUMAN IMMUNOGLOBULIN G
     Indication: Prophylaxis
     Dosage: 20 G, Q4W
     Route: 042

REACTIONS (1)
  - Corneal epithelial microcysts [Not Recovered/Not Resolved]

NARRATIVE: CASE EVENT DATE: 20230307
